FAERS Safety Report 5501179-0 (Version None)
Quarter: 2007Q4

REPORT INFORMATION
  Report Type: 
  Country: None (occurrence: None)
  Receive Date: 20071029
  Receipt Date: 20071024
  Transmission Date: 20080405
  Serious: Yes (Hospitalization)
  Sender: FDA-Public Use
  Company Number: JP-BOEHRINGER INGELHEIM PHARMACEUTICALS, INC.-2007-BP-21416NB

PATIENT
  Sex: Female

DRUGS (7)
  1. MICARDIS [Suspect]
     Indication: HYPERTENSION
     Route: 048
     Dates: start: 20060524
  2. BUFFERIN [Concomitant]
     Indication: PROPHYLAXIS
     Route: 048
     Dates: start: 20060524, end: 20070902
  3. CALBLOCK [Concomitant]
     Indication: HYPERTENSION
     Route: 048
     Dates: start: 20060524, end: 20070902
  4. TAPIZOL (LANSOPRAZOLE) [Concomitant]
     Indication: REFLUX OESOPHAGITIS
     Route: 048
     Dates: start: 20060524, end: 20070902
  5. MASATON (ALLOPURINOL) [Concomitant]
     Indication: HYPERURICAEMIA
     Route: 048
     Dates: start: 20060524, end: 20070902
  6. BUCILLATE (BUCILLAMINE) [Concomitant]
     Route: 048
     Dates: start: 20060524, end: 20070902
  7. RISEDRONATE SODIUM [Concomitant]
     Route: 048
     Dates: start: 20060524, end: 20060819

REACTIONS (1)
  - DEMENTIA [None]
